FAERS Safety Report 16444100 (Version 8)
Quarter: 2020Q1

REPORT INFORMATION
  Report Type: Report from Study
  Country: JP (occurrence: JP)
  Receive Date: 20190618
  Receipt Date: 20200227
  Transmission Date: 20200409
  Serious: Yes (Death, Hospitalization, Other)
  Sender: FDA-Public Use
  Company Number: JP-GLAXOSMITHKLINE-JP2019JPN108916

PATIENT
  Sex: Male
  Weight: 98 kg

DRUGS (24)
  1. LYRICA [Concomitant]
     Active Substance: PREGABALIN
     Indication: EOSINOPHILIC GRANULOMATOSIS WITH POLYANGIITIS
     Dosage: 100 MG, 1D
  2. VOGLIBOSE [Concomitant]
     Active Substance: VOGLIBOSE
     Dosage: 0.6 MG, 1D
  3. NEUROTROPIN (JAPAN) [Concomitant]
     Indication: EOSINOPHILIC GRANULOMATOSIS WITH POLYANGIITIS
     Dosage: 8 UNIT, 1D
  4. PREDONINE [Concomitant]
     Active Substance: PREDNISOLONE
     Dosage: 10 MG, 1D
     Dates: start: 20190222, end: 20190321
  5. PREDONINE [Concomitant]
     Active Substance: PREDNISOLONE
     Dosage: 10 MG, 1D
     Dates: start: 20190510, end: 20190608
  6. NEXIUM [Concomitant]
     Active Substance: ESOMEPRAZOLE MAGNESIUM
     Dosage: 20 MG, 1D
  7. PREDONINE [Concomitant]
     Active Substance: PREDNISOLONE
     Indication: EOSINOPHILIC GRANULOMATOSIS WITH POLYANGIITIS
     Dosage: 15 MG, 1D
     Dates: end: 20190221
  8. TENELIA [Concomitant]
     Active Substance: TENELIGLIPTIN
     Indication: DIABETES MELLITUS
     Dosage: 20 MG, UNK
  9. MEPOLIZUMAB [Suspect]
     Active Substance: MEPOLIZUMAB
     Indication: EOSINOPHILIC GRANULOMATOSIS WITH POLYANGIITIS
     Dosage: 300 MG, QD
     Route: 058
     Dates: start: 20190222, end: 20190222
  10. TRAMAL [Concomitant]
     Active Substance: TRAMADOL
     Dosage: 75 MG, 1D
  11. LANSOPRAZOLE-OD TABLETS [Concomitant]
     Indication: PROPHYLAXIS AGAINST GASTROINTESTINAL ULCER
     Dosage: 15 MG, UNK
  12. MEPOLIZUMAB [Suspect]
     Active Substance: MEPOLIZUMAB
     Dosage: 300 MG, QD
     Route: 058
     Dates: start: 20190601, end: 20190601
  13. PREDONINE [Concomitant]
     Active Substance: PREDNISOLONE
     Dosage: 5 MG, 1D
     Dates: start: 20190322, end: 20190509
  14. FOSAMAC [Concomitant]
     Active Substance: ALENDRONATE SODIUM
     Indication: OSTEOPOROSIS PROPHYLAXIS
     Dosage: 35 MG, UNK
  15. TRYPTANOL TABLETS (AMITRIPTYLINE HYDROCHLORIDE) [Concomitant]
     Indication: EOSINOPHILIC GRANULOMATOSIS WITH POLYANGIITIS
     Dosage: 10 MG, 1D
  16. SYMBICORT TURBUHALER (BUDESONIDE + FORMOTEROL FUMARATE DIHYDRATE) [Concomitant]
     Dosage: 240 ?G, 1D
     Dates: end: 20190607
  17. NIFEDIPINE CR TABLETS [Concomitant]
     Indication: HYPERTENSION
     Dosage: 10 MG, UNK
  18. MEPOLIZUMAB [Suspect]
     Active Substance: MEPOLIZUMAB
     Indication: ASTHMA
     Dosage: 300 MG, QD
     Route: 058
     Dates: start: 20190322, end: 20190322
  19. MEPOLIZUMAB [Suspect]
     Active Substance: MEPOLIZUMAB
     Indication: NEUROPATHY PERIPHERAL
     Dosage: 300 MG, QD
     Route: 058
     Dates: start: 20190416, end: 20190416
  20. METHYCOBAL [Concomitant]
     Active Substance: METHYLCOBALAMIN
     Indication: EOSINOPHILIC GRANULOMATOSIS WITH POLYANGIITIS
     Dosage: 1500 ?G, 1D
  21. BAKTAR [Concomitant]
     Active Substance: SULFAMETHOXAZOLE\TRIMETHOPRIM
     Indication: OPPORTUNISTIC INFECTION PROPHYLAXIS
     Dosage: 0.5 DF, 1D
  22. FEBURIC [Concomitant]
     Active Substance: FEBUXOSTAT
     Indication: HYPERURICAEMIA
     Dosage: 10 MG, 1D
  23. FUROSEMIDE. [Concomitant]
     Active Substance: FUROSEMIDE
     Dosage: 20 MG, 1D
  24. SYMBICORT TURBUHALER (BUDESONIDE + FORMOTEROL FUMARATE DIHYDRATE) [Concomitant]
     Dosage: 640 ?G, 1D
     Dates: end: 20190608

REACTIONS (4)
  - Dehydration [Recovered/Resolved]
  - Circulatory collapse [Unknown]
  - Loss of consciousness [Unknown]
  - Thalamus haemorrhage [Fatal]

NARRATIVE: CASE EVENT DATE: 20190503
